FAERS Safety Report 14861390 (Version 4)
Quarter: 2020Q3

REPORT INFORMATION
  Report Type: Report from Study
  Country: GB (occurrence: GB)
  Receive Date: 20180508
  Receipt Date: 20180615
  Transmission Date: 20201105
  Serious: Yes (Hospitalization)
  Sender: FDA-Public Use
  Company Number: GB-JNJFOC-20180502701

PATIENT
  Age: 75 Year
  Sex: Male

DRUGS (9)
  1. IBRUTINIB [Suspect]
     Active Substance: IBRUTINIB
     Indication: COLORECTAL ADENOCARCINOMA
     Route: 048
     Dates: start: 20180320, end: 20180416
  2. PARACETAMOL [Concomitant]
     Active Substance: ACETAMINOPHEN
     Indication: PAIN
     Route: 048
     Dates: start: 20180522
  3. DEXAMETHASONE. [Concomitant]
     Active Substance: DEXAMETHASONE
     Indication: CHEMOTHERAPY
     Dosage: SINGLE
     Route: 042
     Dates: start: 20180423, end: 20180423
  4. IBRUTINIB [Suspect]
     Active Substance: IBRUTINIB
     Indication: COLORECTAL ADENOCARCINOMA
     Route: 048
     Dates: start: 20180423, end: 20180427
  5. ZOPICLONE [Concomitant]
     Active Substance: ZOPICLONE
     Indication: INSOMNIA
     Route: 048
     Dates: start: 20180409
  6. CETUXIMAB. [Suspect]
     Active Substance: CETUXIMAB
     Indication: COLORECTAL ADENOCARCINOMA
     Route: 042
     Dates: start: 20180320, end: 20180423
  7. CETUXIMAB. [Suspect]
     Active Substance: CETUXIMAB
     Indication: COLORECTAL ADENOCARCINOMA
     Route: 042
     Dates: start: 20180508
  8. CHLORPHENAMINE [Concomitant]
     Active Substance: CHLORPHENIRAMINE MALEATE
     Indication: CHEMOTHERAPY
     Dosage: SINGLE
     Route: 042
     Dates: start: 20180423, end: 20180423
  9. IBRUTINIB [Suspect]
     Active Substance: IBRUTINIB
     Indication: COLORECTAL ADENOCARCINOMA
     Route: 048
     Dates: start: 20180508

REACTIONS (1)
  - Appendicitis [Recovered/Resolved]

NARRATIVE: CASE EVENT DATE: 20180426
